FAERS Safety Report 13387452 (Version 1)
Quarter: 2017Q1

REPORT INFORMATION
  Report Type: Spontaneous
  Country: FR (occurrence: FR)
  Receive Date: 20170330
  Receipt Date: 20170330
  Transmission Date: 20170429
  Serious: Yes (Hospitalization)
  Sender: FDA-Public Use
  Company Number: ALCN2017FR002221

PATIENT
  Age: 4 Month
  Sex: Male
  Weight: 7.54 kg

DRUGS (1)
  1. ISOPTO HOMATROPINE [Suspect]
     Active Substance: HOMATROPINE HYDROBROMIDE
     Indication: MYDRIASIS
     Dosage: UNK UNK, ONCE/SINGLE
     Route: 047
     Dates: start: 20140627, end: 20140627

REACTIONS (2)
  - Somnolence [Recovered/Resolved]
  - Hiccups [Recovered/Resolved]

NARRATIVE: CASE EVENT DATE: 20140627
